FAERS Safety Report 9912565 (Version 1)
Quarter: 2014Q1

REPORT INFORMATION
  Report Type: Spontaneous
  Country: FR (occurrence: None)
  Receive Date: 20140212
  Receipt Date: 20140212
  Transmission Date: 20141002
  Serious: Yes (Other)
  Sender: FDA-Public Use
  Company Number: DSM-2014-00117

PATIENT
  Age: 43 Year
  Sex: Female

DRUGS (4)
  1. COOLMETEC [Suspect]
     Indication: HYPERTENSION
     Route: 048
     Dates: end: 20131217
  2. LEVOTHYROX [Concomitant]
  3. OSTRAM(CALCIUM PHOSPHATE) [Concomitant]
  4. 1-ALPHA(ALFACALCIDOL)(ALFACALCIDOL) [Concomitant]

REACTIONS (4)
  - Pregnancy [None]
  - Maternal exposure during pregnancy [None]
  - Oligohydramnios [None]
  - Blood thyroid stimulating hormone decreased [None]
